FAERS Safety Report 13601408 (Version 1)
Quarter: 2017Q2

REPORT INFORMATION
  Report Type: Spontaneous
  Country: US (occurrence: US)
  Receive Date: 20170601
  Receipt Date: 20170601
  Transmission Date: 20170830
  Serious: Yes (Other)
  Sender: FDA-Public Use
  Company Number: None

PATIENT
  Age: 59 Year
  Sex: Female
  Weight: 56.75 kg

DRUGS (4)
  1. ADVIL [Concomitant]
     Active Substance: IBUPROFEN
  2. CIPROFLOXACIN HCL 500MG [Suspect]
     Active Substance: CIPROFLOXACIN HYDROCHLORIDE
     Indication: BRONCHITIS
     Dosage: 1 TABLET 2X DAY 2X MOUTH
     Route: 048
     Dates: start: 20170218, end: 20170221
  3. CIPROFLOXACIN HCL 500MG [Suspect]
     Active Substance: CIPROFLOXACIN HYDROCHLORIDE
     Indication: COUGH
     Dosage: 1 TABLET 2X DAY 2X MOUTH
     Route: 048
     Dates: start: 20170218, end: 20170221
  4. ADVIL COLD + SINUS [Concomitant]

REACTIONS (5)
  - Muscle tightness [None]
  - Muscular weakness [None]
  - Pain in extremity [None]
  - Erythema [None]
  - Neuropathy peripheral [None]

NARRATIVE: CASE EVENT DATE: 20170221
